FAERS Safety Report 10409673 (Version 1)
Quarter: 2014Q2

REPORT INFORMATION
  Report Type: Spontaneous
  Country: US (occurrence: None)
  Receive Date: 20140604
  Receipt Date: 20140604
  Transmission Date: 20141212
  Serious: No
  Sender: FDA-Public Use
  Company Number: 163-POMAL-14045180

PATIENT
  Age: 73 Year
  Sex: Male
  Weight: 80.29 kg

DRUGS (2)
  1. POMALYST [Suspect]
     Indication: PLASMA CELL MYELOMA
     Route: 048
     Dates: start: 20131223
  2. RITUXAN (RITUXIMAB) [Concomitant]

REACTIONS (1)
  - Orthostatic hypotension [None]
